FAERS Safety Report 8932097 (Version 2)
Quarter: 2013Q1

REPORT INFORMATION
  Report Type: Spontaneous
  Country: BR (occurrence: BR)
  Receive Date: 20121128
  Receipt Date: 20130221
  Transmission Date: 20140127
  Serious: Yes (Other)
  Sender: FDA-Public Use
  Company Number: BR-PFIZER INC-2012153114

PATIENT
  Age: 64 Year
  Sex: Female

DRUGS (6)
  1. SUTENT [Suspect]
     Indication: RENAL CELL CARCINOMA
     Dosage: 50 MG, CYCLIC (CYCLE 2X1)
     Route: 048
     Dates: start: 20120620
  2. LOSARTAN [Concomitant]
     Indication: HYPERTENSION
  3. METFORMIN [Concomitant]
     Indication: DIABETES MELLITUS
     Dosage: STRENGHT 800MG
  4. AMITRIPTYLINE [Concomitant]
  5. DIURIX [Concomitant]
     Indication: HYPERTENSION
  6. DIPIRONE [Concomitant]
     Indication: PAIN
     Dosage: 500 MG, AS NEEDED

REACTIONS (18)
  - Umbilical haemorrhage [Unknown]
  - Yellow skin [Unknown]
  - Sluggishness [Unknown]
  - Insomnia [Unknown]
  - Dyspnoea [Unknown]
  - Abdominal pain [Unknown]
  - Diarrhoea [Unknown]
  - Faeces discoloured [Unknown]
  - Chromaturia [Unknown]
  - Depressed mood [Not Recovered/Not Resolved]
  - Retching [Not Recovered/Not Resolved]
  - Dysgeusia [Not Recovered/Not Resolved]
  - Onychomadesis [Not Recovered/Not Resolved]
  - Epistaxis [Unknown]
  - Feeling abnormal [Unknown]
  - Malaise [Unknown]
  - Eating disorder [Recovered/Resolved]
  - Muscular weakness [Recovered/Resolved]
